FAERS Safety Report 4570528-2 (Version None)
Quarter: 2005Q1

REPORT INFORMATION
  Report Type: 
  Country: None (occurrence: None)
  Receive Date: 20050203
  Receipt Date: 20050203
  Transmission Date: 20050727
  Serious: No
  Sender: FDA-Public Use
  Company Number: None

PATIENT
  Age: 60 Year
  Sex: Female
  Weight: 55.3388 kg

DRUGS (1)
  1. SCOPOLAMIN  1.5 MG [Suspect]
     Dosage: 2 PATCHES
     Dates: start: 20041122, end: 20041129

REACTIONS (2)
  - DIZZINESS [None]
  - NAUSEA [None]
